FAERS Safety Report 7061469-X (Version None)
Quarter: 2010Q4

REPORT INFORMATION
  Report Type: 
  Country: None (occurrence: None)
  Receive Date: 20101026
  Receipt Date: 20101013
  Transmission Date: 20110411
  Serious: Yes (Other)
  Sender: FDA-Public Use
  Company Number: GB-ELI_LILLY_AND_COMPANY-GB201010002788

PATIENT
  Age: 58 Year
  Sex: Male

DRUGS (2)
  1. ZYPREXA [Suspect]
     Dosage: 10 MG, UNKNOWN
     Route: 065
  2. ZYPREXA [Suspect]
     Dosage: 20 MG, UNKNOWN
     Route: 065

REACTIONS (1)
  - BLOOD GLUCOSE DECREASED [None]
